FAERS Safety Report 8532731-6 (Version None)
Quarter: 2012Q3

REPORT INFORMATION
  Report Type: 
  Country: None (occurrence: None)
  Receive Date: 20120724
  Receipt Date: 20120718
  Transmission Date: 20120928
  Serious: Yes (Other)
  Sender: FDA-Public Use
  Company Number: PHEH2012US014091

PATIENT
  Sex: Female

DRUGS (2)
  1. DIOVAN HCT [Suspect]
     Indication: HYPERTENSION
     Dosage: 1 DF (320 MG VALSAR AND 25 MG HYDRO), DAILY
     Route: 048
  2. DIOVAN HCT [Suspect]
     Dosage: UNK UKN, UNK
     Route: 048

REACTIONS (1)
  - MYOCARDIAL INFARCTION [None]
